FAERS Safety Report 7892979-0 (Version None)
Quarter: 2011Q4

REPORT INFORMATION
  Report Type: 
  Country: None (occurrence: None)
  Receive Date: 20111104
  Receipt Date: 20111026
  Transmission Date: 20120403
  Serious: Yes (Other)
  Sender: FDA-Public Use
  Company Number: DE-BRISTOL-MYERS SQUIBB COMPANY-16213878

PATIENT
  Age: 75 Year
  Sex: Female

DRUGS (7)
  1. TOVIAZ [Concomitant]
     Indication: URINARY INCONTINENCE
     Route: 048
  2. LEVOTHYROXINE SODIUM [Concomitant]
     Route: 048
  3. JANUMET [Concomitant]
     Indication: TYPE 2 DIABETES MELLITUS
     Route: 048
  4. GLYBURIDE [Concomitant]
     Indication: TYPE 2 DIABETES MELLITUS
     Route: 048
  5. XIPAMIDE [Concomitant]
     Indication: HYPERTENSION
  6. GLUCOPHAGE [Suspect]
     Indication: TYPE 2 DIABETES MELLITUS
     Route: 048
  7. ALLOPURINOL [Concomitant]
     Indication: GOUT
     Route: 048

REACTIONS (5)
  - VOMITING [None]
  - BLOOD GLUCOSE INCREASED [None]
  - NAUSEA [None]
  - EPIGASTRIC DISCOMFORT [None]
  - RENAL IMPAIRMENT [None]
